FAERS Safety Report 8343969-5 (Version None)
Quarter: 2012Q2

REPORT INFORMATION
  Report Type: 
  Country: None (occurrence: None)
  Receive Date: 20120503
  Receipt Date: 20120424
  Transmission Date: 20120825
  Serious: Yes (Hospitalization)
  Sender: FDA-Public Use
  Company Number: 2012100970

PATIENT
  Age: 85 Year
  Sex: Male

DRUGS (1)
  1. FRAGMIN [Suspect]
     Indication: PULMONARY EMBOLISM

REACTIONS (4)
  - THROMBOSIS [None]
  - MYOCARDIAL INFARCTION [None]
  - INCORRECT ROUTE OF DRUG ADMINISTRATION [None]
  - HAEMORRHAGE [None]
